FAERS Safety Report 8963720 (Version 4)
Quarter: 2013Q2

REPORT INFORMATION
  Report Type: Spontaneous
  Country: BR (occurrence: BR)
  Receive Date: 20121214
  Receipt Date: 20130618
  Transmission Date: 20140414
  Serious: Yes (Hospitalization, Other)
  Sender: FDA-Public Use
  Company Number: BR-AMGEN-BRASP2012079989

PATIENT
  Age: 68 Year
  Sex: Female
  Weight: 47 kg

DRUGS (14)
  1. ENBREL [Suspect]
     Indication: RHEUMATOID ARTHRITIS
     Dosage: 50 MG, ONCE A WEEK
     Route: 058
     Dates: start: 201109
  2. METICORTEN [Concomitant]
     Indication: ARTHRITIS
     Dosage: 5 MG, 1X/DAY IN THE MORNING
     Dates: start: 1980
  3. METICORTEN [Concomitant]
     Indication: RHEUMATOID ARTHRITIS
     Dosage: 2.5 MG, 1X/DAY AT NIGHT
     Dates: start: 1980
  4. CARBAMAZEPINE [Concomitant]
     Indication: ANEURYSM
     Dosage: 800 MG, 1X/DAY
     Dates: start: 201106
  5. CARBAMAZEPINE [Concomitant]
     Dosage: 800 MG, 1X/DAY
     Dates: start: 201107
  6. HYDROCHLOROTHIAZIDE [Concomitant]
     Indication: BLOOD PRESSURE
     Dosage: 25 MG, 1X/DAY
     Dates: start: 2007
  7. ATENOLOL [Concomitant]
     Indication: HYPERTENSION
     Dosage: 25 MG, 2X/DAY
     Dates: start: 20110816
  8. SUSTRATE [Concomitant]
     Indication: BLOOD PRESSURE
     Dosage: UNK
     Dates: start: 2007
  9. SIMVASTATIN [Concomitant]
     Indication: BLOOD CHOLESTEROL
     Dosage: 20 MG, 1X/DAY
     Dates: start: 2002
  10. CYSTANIN [Concomitant]
     Indication: PRODUCT USED FOR UNKNOWN INDICATION
     Dosage: 1 GTT, 3X/DAY
  11. LOSARTAN [Concomitant]
     Indication: HYPERTENSION
     Dosage: 100 MG, 1X/DAY
     Dates: start: 20060816
  12. OMEPRAZOL                          /00661201/ [Concomitant]
     Indication: ABDOMINAL DISCOMFORT
     Dosage: UNK, 1 TABLET A DAY
     Dates: start: 20030816
  13. TYLENOL                            /00020001/ [Concomitant]
     Indication: ARTHRALGIA
     Dosage: 750 MG, AS NEEDED
  14. DAFLON                             /00426001/ [Concomitant]
     Indication: CARDIOVASCULAR DISORDER
     Dosage: UNK

REACTIONS (9)
  - Aneurysm [Unknown]
  - Fall [Unknown]
  - Face injury [Unknown]
  - Gait disturbance [Unknown]
  - Head injury [Unknown]
  - Memory impairment [Unknown]
  - Injection site erythema [Unknown]
  - Injection site pruritus [Unknown]
  - Injection site pain [Unknown]
